FAERS Safety Report 12772572 (Version 1)
Quarter: 2016Q3

REPORT INFORMATION
  Report Type: Spontaneous
  Country: US (occurrence: US)
  Receive Date: 20160922
  Receipt Date: 20160922
  Transmission Date: 20161109
  Serious: Yes (Other)
  Sender: FDA-Public Use
  Company Number: US-PURDUE PHARMA-CAN-2016-0007035

PATIENT
  Age: 72 Year
  Sex: Female

DRUGS (4)
  1. METHYLPHENIDATE HYDROCHLORIDE. [Suspect]
     Active Substance: METHYLPHENIDATE HYDROCHLORIDE
     Indication: PRODUCT USED FOR UNKNOWN INDICATION
     Dosage: 10 MG, TID
     Route: 065
  2. TRAMADOL. [Suspect]
     Active Substance: TRAMADOL
     Indication: PRODUCT USED FOR UNKNOWN INDICATION
     Dosage: 50 MG, Q6H PRN
     Route: 065
  3. CITALOPRAM [Suspect]
     Active Substance: CITALOPRAM HYDROBROMIDE
     Indication: PRODUCT USED FOR UNKNOWN INDICATION
     Dosage: 40 MG, UNK
     Route: 065
  4. TRAMADOL. [Suspect]
     Active Substance: TRAMADOL
     Dosage: 25 MG, Q6H PRN
     Route: 065

REACTIONS (12)
  - Muscle rigidity [Unknown]
  - Restlessness [Unknown]
  - Agitation [Unknown]
  - Vomiting [Unknown]
  - Disorientation [Unknown]
  - Tremor [Unknown]
  - Diarrhoea [Unknown]
  - Serotonin syndrome [Unknown]
  - Hyperreflexia [Unknown]
  - Confusional state [Unknown]
  - Myoclonus [Unknown]
  - Pyrexia [Unknown]
